FAERS Safety Report 7138307-X (Version None)
Quarter: 2010Q4

REPORT INFORMATION
  Report Type: 
  Country: None (occurrence: None)
  Receive Date: 20101206
  Receipt Date: 20101124
  Transmission Date: 20110411
  Serious: Yes (Hospitalization)
  Sender: FDA-Public Use
  Company Number: ES-ROCHE-744268

PATIENT
  Sex: Male
  Weight: 63.6 kg

DRUGS (9)
  1. BEVACIZUMAB [Suspect]
     Indication: COLORECTAL CANCER
     Dosage: FORM: INFUSION
     Route: 042
     Dates: start: 20101020
  2. CAPECITABINE [Suspect]
     Indication: COLORECTAL CANCER
     Dosage: FREQUENCY: DAILY, TEMPORARILY INTERRUPTED.
     Route: 048
     Dates: start: 20101020, end: 20101116
  3. IRINOTECAN HCL [Suspect]
     Indication: COLORECTAL CANCER
     Route: 042
     Dates: start: 20101020
  4. INDAPAMIDA [Concomitant]
  5. VANDRAL [Concomitant]
  6. IDALPREM [Concomitant]
  7. OMEPRAZOLE [Concomitant]
  8. PERINDOPRIL [Concomitant]
  9. ADIRO [Concomitant]
     Dates: start: 20090101

REACTIONS (1)
  - SUBILEUS [None]
